FAERS Safety Report 7424536-4 (Version None)
Quarter: 2011Q2

REPORT INFORMATION
  Report Type: 
  Country: None (occurrence: None)
  Receive Date: 20110419
  Receipt Date: 20110406
  Transmission Date: 20111010
  Serious: Yes (Life-Threatening, Hospitalization)
  Sender: FDA-Public Use
  Company Number: JP-JNJFOC-20101200226

PATIENT
  Sex: Female
  Weight: 51 kg

DRUGS (11)
  1. BUCILLAMINE [Concomitant]
     Indication: RHEUMATOID ARTHRITIS
     Route: 048
  2. PATELL [Concomitant]
     Indication: RHEUMATOID ARTHRITIS
  3. INFLIXIMAB, RECOMBINANT [Suspect]
     Indication: RHEUMATOID ARTHRITIS
     Route: 042
  4. INFLIXIMAB, RECOMBINANT [Suspect]
     Route: 042
  5. LEBENIN [Concomitant]
     Indication: DIARRHOEA
     Route: 048
  6. RADEN [Concomitant]
     Indication: PROPHYLAXIS
     Route: 048
  7. ITOPRIDE HYDROCHLORIDE [Concomitant]
     Indication: GASTRITIS
     Route: 048
  8. INFLIXIMAB, RECOMBINANT [Suspect]
     Route: 042
  9. METHOTREXATE [Suspect]
     Indication: RHEUMATOID ARTHRITIS
     Route: 048
  10. LOXONIN [Concomitant]
     Indication: RHEUMATOID ARTHRITIS
     Route: 048
  11. IRSOGLADINE MALEATE [Concomitant]
     Indication: GASTRITIS
     Route: 048

REACTIONS (3)
  - PNEUMOCYSTIS JIROVECI PNEUMONIA [None]
  - PNEUMONIA FUNGAL [None]
  - PLEURAL EFFUSION [None]
